FAERS Safety Report 25043898 (Version 1)
Quarter: 2025Q1

REPORT INFORMATION
  Report Type: Spontaneous
  Country: IE (occurrence: IE)
  Receive Date: 20250306
  Receipt Date: 20250306
  Transmission Date: 20250408
  Serious: Yes (Other)
  Sender: OCTAPHARMA
  Company Number: GB-OCTA-ONORM05823

PATIENT
  Age: 50 Year
  Sex: Male

DRUGS (1)
  1. CUTAQUIG [Suspect]
     Active Substance: HUMAN IMMUNOGLOBULIN G
     Indication: Product used for unknown indication
     Route: 058

REACTIONS (3)
  - Injection site mass [Recovering/Resolving]
  - Infusion site swelling [Recovering/Resolving]
  - Infusion site infection [Unknown]
